FAERS Safety Report 7620393-1 (Version None)
Quarter: 2011Q3

REPORT INFORMATION
  Report Type: 
  Country: None (occurrence: None)
  Receive Date: 20110718
  Receipt Date: 20110718
  Transmission Date: 20111222
  Serious: Yes (Other)
  Sender: FDA-Public Use
  Company Number: None

PATIENT
  Age: 78 Year
  Sex: Female
  Weight: 68.038 kg

DRUGS (2)
  1. LEVOTHYROXINE SODIUM [Suspect]
     Indication: HYPOTHYROIDISM
     Dosage: 1/2 TABLET FOR 2 WEEKS THEN 1
     Route: 048
     Dates: start: 20110617, end: 20110703
  2. LEVOTHYROXINE SODIUM [Concomitant]
     Dosage: 1 QD

REACTIONS (1)
  - INFLUENZA LIKE ILLNESS [None]
